FAERS Safety Report 7680883-2 (Version None)
Quarter: 2011Q3

REPORT INFORMATION
  Report Type: 
  Country: None (occurrence: None)
  Receive Date: 20110812
  Receipt Date: 20110810
  Transmission Date: 20111222
  Serious: No
  Sender: FDA-Public Use
  Company Number: US-TEVA-294241USA

PATIENT
  Age: 42 Year
  Sex: Female

DRUGS (1)
  1. AZILECT [Suspect]
     Indication: PARKINSON'S DISEASE
     Dosage: 1 AM AND 1 PM
     Route: 048
     Dates: start: 20110501

REACTIONS (7)
  - HYPOTENSION [None]
  - PALPITATIONS [None]
  - HYPERHIDROSIS [None]
  - DYSPNOEA [None]
  - COLD SWEAT [None]
  - DIZZINESS [None]
  - PALLOR [None]
